FAERS Safety Report 8031865 (Version 4)
Quarter: 2013Q4

REPORT INFORMATION
  Report Type: Spontaneous
  Country: IT (occurrence: IT)
  Receive Date: 20110712
  Receipt Date: 20131031
  Transmission Date: 20140711
  Serious: Yes (Hospitalization)
  Sender: FDA-Public Use
  Company Number: IT-009507513-1107ITA00016

PATIENT
  Age: 70 Year
  Sex: Female
  Weight: 59 kg

DRUGS (4)
  1. FOSAMAX [Suspect]
     Indication: OSTEOPOROSIS
     Dosage: UNK
     Dates: start: 2002
  2. FOSAMAX [Suspect]
     Dosage: 70 MG, QW
     Dates: end: 200601
  3. DRONAL 70 MG COMPRESSE [Suspect]
     Indication: OSTEOPOROSIS
     Dosage: UNK MG, UNK
     Route: 048
     Dates: start: 2002
  4. EFFERALGAN [Suspect]
     Dosage: 500

REACTIONS (9)
  - Sinusitis [Not Recovered/Not Resolved]
  - Dental fistula [Not Recovered/Not Resolved]
  - Oral disorder [Not Recovered/Not Resolved]
  - Gingival disorder [Not Recovered/Not Resolved]
  - Emphysema [Unknown]
  - Bone loss [Unknown]
  - Osteitis [Not Recovered/Not Resolved]
  - Uterine prolapse [Unknown]
  - Oral disorder [Unknown]
